FAERS Safety Report 8778660 (Version 2)
Quarter: 2012Q4

REPORT INFORMATION
  Report Type: 
  Country: US (occurrence: US)
  Receive Date: 20120912
  Receipt Date: 20121001
  Transmission Date: 20130627
  Serious: Yes (Other)
  Sender: FDA-Public Use
  Company Number: US-PFIZER INC-2012222838

PATIENT
  Age: 59 Year
  Sex: Male

DRUGS (2)
  1. XALKORI [Suspect]
     Dosage: UNK
     Dates: start: 2006
  2. XALKORI [Suspect]
     Dosage: UNK
     Dates: start: 201203, end: 20120827

REACTIONS (1)
  - Oedema peripheral [Unknown]
